FAERS Safety Report 9764262 (Version 2)
Quarter: 2013Q4

REPORT INFORMATION
  Report Type: Spontaneous
  Country: US (occurrence: US)
  Receive Date: 20131216
  Receipt Date: 20131216
  Transmission Date: 20140711
  Serious: Yes (Disabling, Other)
  Sender: FDA-Public Use
  Company Number: US-GE HEALTHCARE MEDICAL DIAGNOSTICS-OSCN-PR-0806S-0354

PATIENT
  Sex: Female

DRUGS (12)
  1. GADOLINIUM (UNSPECIFIED) [Suspect]
     Indication: PRODUCT USED FOR UNKNOWN INDICATION
     Dates: start: 20020820, end: 20020820
  2. GADOLINIUM (UNSPECIFIED) [Suspect]
     Indication: PRODUCT USED FOR UNKNOWN INDICATION
     Dates: start: 200506, end: 200506
  3. GADOLINIUM (UNSPECIFIED) [Suspect]
     Indication: PRODUCT USED FOR UNKNOWN INDICATION
     Dates: start: 2005, end: 2005
  4. GADOLINIUM (UNSPECIFIED) [Suspect]
     Dates: start: 2005, end: 2005
  5. MAGNEVIST [Suspect]
     Indication: OSTEOMYELITIS
     Dates: start: 19980821, end: 19980824
  6. MULTIHANCE [Suspect]
     Indication: PRODUCT USED FOR UNKNOWN INDICATION
     Dates: start: 20050707, end: 20050707
  7. PROHANCE [Suspect]
     Indication: PRODUCT USED FOR UNKNOWN INDICATION
     Dates: start: 20050707, end: 20050707
  8. ARICEPT [Concomitant]
  9. PROGRAF [Concomitant]
  10. INSULIN [Concomitant]
  11. SENSIPAR [Concomitant]
  12. LASIX [Concomitant]

REACTIONS (1)
  - Nephrogenic systemic fibrosis [Not Recovered/Not Resolved]
